FAERS Safety Report 25056599 (Version 4)
Quarter: 2025Q2

REPORT INFORMATION
  Report Type: Spontaneous
  Country: JP (occurrence: JP)
  Receive Date: 20250310
  Receipt Date: 20250408
  Transmission Date: 20250716
  Serious: Yes (Hospitalization, Other)
  Sender: ASTELLAS
  Company Number: JP-ASTELLAS-2024-AER-001389

PATIENT
  Age: 6 Decade
  Sex: Female

DRUGS (10)
  1. XOSPATA [Suspect]
     Active Substance: GILTERITINIB
     Indication: Acute myeloid leukaemia refractory
     Route: 048
     Dates: start: 20240822, end: 20240830
  2. XOSPATA [Suspect]
     Active Substance: GILTERITINIB
     Route: 048
  3. XOSPATA [Suspect]
     Active Substance: GILTERITINIB
     Route: 048
  4. XOSPATA [Suspect]
     Active Substance: GILTERITINIB
     Route: 048
  5. XOSPATA [Suspect]
     Active Substance: GILTERITINIB
     Route: 048
     Dates: start: 20250108
  6. XOSPATA [Suspect]
     Active Substance: GILTERITINIB
     Route: 048
  7. XOSPATA [Suspect]
     Active Substance: GILTERITINIB
     Route: 048
  8. XOSPATA [Suspect]
     Active Substance: GILTERITINIB
     Route: 048
  9. VENETOCLAX [Concomitant]
     Active Substance: VENETOCLAX
     Indication: Product used for unknown indication
     Route: 065
  10. AZACITIDINE [Concomitant]
     Active Substance: AZACITIDINE
     Indication: Product used for unknown indication
     Route: 065

REACTIONS (10)
  - Pancreatitis [Recovered/Resolved]
  - Infection [Recovered/Resolved]
  - Appendicitis [Recovered/Resolved]
  - Graft versus host disease in gastrointestinal tract [Recovered/Resolved]
  - Full blood count decreased [Recovering/Resolving]
  - Amylase increased [Recovered/Resolved]
  - Arthralgia [Recovering/Resolving]
  - Hepatic function abnormal [Recovered/Resolved]
  - Product use issue [Unknown]
  - Off label use [Unknown]

NARRATIVE: CASE EVENT DATE: 20240822
